FAERS Safety Report 4616646-1 (Version None)
Quarter: 2005Q1

REPORT INFORMATION
  Report Type: 
  Country: None (occurrence: None)
  Receive Date: 20050321
  Receipt Date: 20040514
  Transmission Date: 20050727
  Serious: No
  Sender: FDA-Public Use
  Company Number: 7984

PATIENT
  Age: 69 Year
  Sex: Female

DRUGS (3)
  1. PACLITAXEL [Suspect]
     Indication: OVARIAN CANCER
  2. CARBOPLATIN [Suspect]
     Indication: OVARIAN CANCER
  3. CISPLATIN [Suspect]
     Indication: OVARIAN CANCER

REACTIONS (4)
  - ALOPECIA [None]
  - DISEASE PROGRESSION [None]
  - HYPOTHYROIDISM [None]
  - NEUROPATHY [None]
